FAERS Safety Report 17702410 (Version 4)
Quarter: 2020Q4

REPORT INFORMATION
  Report Type: Spontaneous
  Country: US (occurrence: US)
  Receive Date: 20200423
  Receipt Date: 20201208
  Transmission Date: 20210113
  Serious: Yes (Hospitalization, Other)
  Sender: FDA-Public Use
  Company Number: US-GLAXOSMITHKLINE-US2020AMR065514

PATIENT
  Sex: Female

DRUGS (5)
  1. ZEJULA [Suspect]
     Active Substance: NIRAPARIB
     Dosage: 200 MG, QD
     Dates: start: 20200210
  2. ZEJULA [Suspect]
     Active Substance: NIRAPARIB
     Dosage: 200 MG, QD
     Dates: start: 20200413
  3. ZEJULA [Suspect]
     Active Substance: NIRAPARIB
     Indication: OVARIAN CANCER
     Dosage: 200 MG, QD
     Dates: start: 20200206
  4. OXYCODONE [Suspect]
     Active Substance: OXYCODONE
     Indication: PRODUCT USED FOR UNKNOWN INDICATION
     Dosage: UNK
     Route: 065
  5. ZEJULA [Suspect]
     Active Substance: NIRAPARIB
     Dosage: 100 MG, QD
     Route: 065
     Dates: start: 2020

REACTIONS (15)
  - Neuropathy peripheral [Unknown]
  - Ageusia [Unknown]
  - Dry mouth [Unknown]
  - Intestinal obstruction [Unknown]
  - Drug intolerance [Unknown]
  - Hypoaesthesia [Unknown]
  - Peripheral coldness [Unknown]
  - Abdominal discomfort [Unknown]
  - Photosensitivity reaction [Unknown]
  - Rhinorrhoea [Unknown]
  - Pruritus [Unknown]
  - Muscular weakness [Unknown]
  - Platelet count decreased [Unknown]
  - Adverse drug reaction [Unknown]
  - Dysgeusia [Unknown]
